FAERS Safety Report 8599024-2 (Version None)
Quarter: 2012Q3

REPORT INFORMATION
  Report Type: 
  Country: None (occurrence: None)
  Receive Date: 20120816
  Receipt Date: 20120810
  Transmission Date: 20120928
  Serious: Yes (Other)
  Sender: FDA-Public Use
  Company Number: PHEH2012US015735

PATIENT
  Sex: Female

DRUGS (2)
  1. DIOVAN [Suspect]
     Dosage: 160 MG, QD
  2. LISINOPRIL [Suspect]

REACTIONS (5)
  - HOT FLUSH [None]
  - DYSGEUSIA [None]
  - MYALGIA [None]
  - FATIGUE [None]
  - HAEMORRHAGE [None]
